FAERS Safety Report 6055003-0 (Version None)
Quarter: 2009Q1

REPORT INFORMATION
  Report Type: 
  Country: None (occurrence: None)
  Receive Date: 20090128
  Receipt Date: 20090115
  Transmission Date: 20090719
  Serious: Yes (Hospitalization)
  Sender: FDA-Public Use
  Company Number: FR-SANOFI-SYNTHELABO-A02200900158

PATIENT
  Age: 83 Year
  Sex: Male

DRUGS (5)
  1. UMULINE [Suspect]
     Indication: TYPE 1 DIABETES MELLITUS
     Dosage: UNK
     Route: 058
  2. HYPERIUM [Suspect]
     Indication: DRUG USE FOR UNKNOWN INDICATION
     Dosage: UNK
     Route: 048
  3. ATACAND [Suspect]
     Indication: DRUG USE FOR UNKNOWN INDICATION
     Dosage: UNK
     Route: 048
  4. PLAVIX [Suspect]
     Indication: PROPHYLAXIS
     Dosage: UNK
     Route: 048
  5. LASILIX [Suspect]
     Indication: RENAL FAILURE
     Dosage: UNK
     Route: 048
     Dates: end: 20080311

REACTIONS (7)
  - BLOOD CULTURE POSITIVE [None]
  - BUNDLE BRANCH BLOCK RIGHT [None]
  - CULTURE URINE POSITIVE [None]
  - DISORIENTATION [None]
  - DRUG RASH WITH EOSINOPHILIA AND SYSTEMIC SYMPTOMS [None]
  - ESCHERICHIA INFECTION [None]
  - STREPTOCOCCAL INFECTION [None]
